FAERS Safety Report 7130745-4 (Version None)
Quarter: 2010Q4

REPORT INFORMATION
  Report Type: 
  Country: None (occurrence: None)
  Receive Date: 20101201
  Receipt Date: 20101122
  Transmission Date: 20110411
  Serious: Yes (Hospitalization)
  Sender: FDA-Public Use
  Company Number: IT-ASTRAZENECA-2010SE52406

PATIENT
  Age: 21121 Day
  Sex: Female

DRUGS (2)
  1. NEXIUM [Suspect]
     Indication: GASTRIC ULCER HAEMORRHAGE
     Route: 042
     Dates: start: 20101028, end: 20101031
  2. FERLIXIT [Concomitant]
     Route: 042
     Dates: start: 20101029, end: 20101103

REACTIONS (1)
  - RHABDOMYOLYSIS [None]
